FAERS Safety Report 9639982 (Version 2)
Quarter: 2013Q4

REPORT INFORMATION
  Report Type: Other
  Country: IT (occurrence: IT)
  Receive Date: 20131023
  Receipt Date: 20131217
  Transmission Date: 20140711
  Serious: Yes (Hospitalization)
  Sender: FDA-Public Use
  Company Number: IT-MPIJNJ-2013JNJ000618

PATIENT
  Sex: 0

DRUGS (8)
  1. VELCADE [Suspect]
     Indication: PLASMA CELL MYELOMA
     Dosage: 2.6 MG, UNK
     Route: 058
     Dates: start: 20130806, end: 20130813
  2. THALIDOMIDE [Suspect]
     Dosage: 100 MG, UNK
     Route: 048
     Dates: start: 20130806, end: 20130816
  3. DEXAMETHASONE [Suspect]
     Indication: PLASMA CELL MYELOMA
     Dosage: 40 MG, UNK
     Route: 042
     Dates: start: 20130806, end: 20130816
  4. SOLDESAM [Suspect]
     Indication: PLASMA CELL MYELOMA
     Dosage: 20 MG, UNK
     Route: 048
     Dates: start: 20130807, end: 20130814
  5. ALLOPURINOL [Concomitant]
     Indication: HYPERURICAEMIA
     Dosage: 300 MG, UNK
     Route: 048
     Dates: start: 20130729, end: 20130830
  6. OMEPRAZOLE [Concomitant]
     Indication: GASTROOESOPHAGEAL REFLUX DISEASE
     Dosage: 20 MG, UNK
     Dates: start: 20111215, end: 20130830
  7. NADROPARIN [Concomitant]
     Indication: THROMBOSIS PROPHYLAXIS
     Dosage: 0.4 ML, UNK
     Route: 058
     Dates: start: 20130729, end: 20130830
  8. TAPENTADOL [Concomitant]
     Indication: METASTATIC PAIN
     Dosage: 100 MG, UNK
     Route: 048
     Dates: start: 20130723, end: 20130830

REACTIONS (1)
  - Pneumonia legionella [Recovered/Resolved]
